FAERS Safety Report 6438440-1 (Version None)
Quarter: 2009Q4

REPORT INFORMATION
  Report Type: 
  Country: None (occurrence: None)
  Receive Date: 20091112
  Receipt Date: 20091101
  Transmission Date: 20100525
  Serious: Yes (Hospitalization)
  Sender: FDA-Public Use
  Company Number: TW-BAXTER-2009BH016924

PATIENT
  Sex: Male

DRUGS (4)
  1. DIANEAL [Suspect]
     Indication: PERITONEAL DIALYSIS
     Route: 033
     Dates: start: 20090901
  2. DIANEAL [Suspect]
     Route: 033
     Dates: start: 20090901
  3. NUTRINEAL [Suspect]
     Indication: PERITONEAL DIALYSIS
     Route: 033
     Dates: start: 20090901
  4. NUTRINEAL [Suspect]
     Route: 033
     Dates: start: 20090901

REACTIONS (3)
  - FUNGAL PERITONITIS [None]
  - GASTROINTESTINAL INFECTION [None]
  - PERITONITIS BACTERIAL [None]
